FAERS Safety Report 10421133 (Version 2)
Quarter: 2014Q3

REPORT INFORMATION
  Report Type: Spontaneous
  Country: PL (occurrence: PL)
  Receive Date: 20140830
  Receipt Date: 20140902
  Transmission Date: 20150326
  Serious: Yes (Life-Threatening, Hospitalization, Other)
  Sender: FDA-Public Use
  Company Number: PL-009507513-1408POL014505

PATIENT
  Age: 22 Year
  Sex: Female

DRUGS (4)
  1. VICTRELIS [Suspect]
     Active Substance: BOCEPREVIR
     Indication: CHRONIC HEPATITIS C
     Dosage: TOTAL DAILY DOSE: 7 TABLETS TAKEN(INSTEAD OF 12 PRESCRIBED)
     Route: 048
     Dates: start: 201406, end: 201408
  2. PEGINTRON [Suspect]
     Active Substance: PEGINTERFERON ALFA-2B
     Indication: CHRONIC HEPATITIS C
     Dosage: ONCE WEEKLY, 50 MICROGRAM TOTAL DAILY DOSE
     Route: 058
     Dates: start: 201407, end: 201408
  3. REBETOL [Suspect]
     Active Substance: RIBAVIRIN
     Indication: CHRONIC HEPATITIS C
     Dosage: BID, 1000 MG TOTAL DAILY DOSE
     Route: 048
     Dates: start: 201405, end: 201408
  4. PEGINTRON [Suspect]
     Active Substance: PEGINTERFERON ALFA-2B
     Dosage: ONCE WEEKLY, 150 MICROGRAM TOTAL DAILY DOSE
     Route: 058
     Dates: start: 201405, end: 201406

REACTIONS (4)
  - Bone marrow failure [Recovered/Resolved]
  - Neutropenia [Recovered/Resolved]
  - Abdominal pain [Recovered/Resolved]
  - Incorrect dosage administered [Unknown]

NARRATIVE: CASE EVENT DATE: 201407
